FAERS Safety Report 15825018 (Version 19)
Quarter: 2022Q1

REPORT INFORMATION
  Report Type: Other
  Country: DE (occurrence: None)
  Receive Date: 20190115
  Receipt Date: 20220329
  Transmission Date: 20220423
  Serious: No
  Sender: FDA-Public Use
  Company Number: DE-ROCHE-2245268

PATIENT
  Age: 28 Year
  Sex: Female
  Weight: 86 kg

DRUGS (10)
  1. OCRELIZUMAB [Suspect]
     Active Substance: OCRELIZUMAB
     Indication: Relapsing multiple sclerosis
     Route: 042
     Dates: start: 20180604, end: 20180618
  2. OCRELIZUMAB [Suspect]
     Active Substance: OCRELIZUMAB
     Route: 042
     Dates: start: 20181210, end: 20190604
  3. DIMETHYL FUMARATE [Suspect]
     Active Substance: DIMETHYL FUMARATE
     Indication: Relapsing multiple sclerosis
     Route: 048
     Dates: start: 20200610
  4. DIMETHYL FUMARATE [Suspect]
     Active Substance: DIMETHYL FUMARATE
     Route: 048
     Dates: start: 201501, end: 201512
  5. COVID-19 VACCINE [Concomitant]
     Indication: Prophylaxis
     Route: 030
     Dates: start: 202104, end: 202104
  6. LYRICA [Concomitant]
     Active Substance: PREGABALIN
     Dosage: PAIN CAUSED BY MULTIPLE SCLEROSIS
     Route: 048
     Dates: start: 2015
  7. LYRICA [Concomitant]
     Active Substance: PREGABALIN
     Route: 048
     Dates: start: 2015
  8. LYRICA [Concomitant]
     Active Substance: PREGABALIN
     Route: 048
     Dates: start: 2015
  9. METHYLPREDNISOLONE [Concomitant]
     Active Substance: METHYLPREDNISOLONE
     Indication: Multiple sclerosis relapse
     Dosage: MULTIPLE SCLEROSIS FLARE
     Route: 042
     Dates: start: 20190920, end: 20190923
  10. MAXIM (GERMANY) [Concomitant]
     Indication: Contraception
     Route: 048
     Dates: start: 201805

REACTIONS (10)
  - Depression [Not Recovered/Not Resolved]
  - Cystitis noninfective [Recovered/Resolved]
  - Oral fungal infection [Recovered/Resolved]
  - Oral fungal infection [Recovered/Resolved]
  - Nasopharyngitis [Recovered/Resolved]
  - Urticaria [Recovered/Resolved]
  - Pharyngitis [Recovered/Resolved]
  - Nasopharyngitis [Recovered/Resolved]
  - Cystitis noninfective [Recovered/Resolved]
  - Oropharyngeal pain [Recovered/Resolved]

NARRATIVE: CASE EVENT DATE: 20180601
